FAERS Safety Report 8479818-4 (Version None)
Quarter: 2012Q2

REPORT INFORMATION
  Report Type: 
  Country: None (occurrence: None)
  Receive Date: 20120629
  Receipt Date: 20120619
  Transmission Date: 20120825
  Serious: Yes (Other)
  Sender: FDA-Public Use
  Company Number: US-ELI_LILLY_AND_COMPANY-US201206006186

PATIENT
  Sex: Male

DRUGS (4)
  1. APIDRA [Concomitant]
     Indication: TYPE 2 DIABETES MELLITUS
  2. HUMALOG [Suspect]
     Indication: TYPE 2 DIABETES MELLITUS
     Dosage: UNK, UNKNOWN
  3. NOVOLOG [Concomitant]
     Indication: TYPE 2 DIABETES MELLITUS
  4. LANTUS [Concomitant]
     Indication: TYPE 2 DIABETES MELLITUS
     Dosage: 80 U, BID
     Dates: start: 20050101

REACTIONS (5)
  - SKIN ULCER [None]
  - BLOOD GLUCOSE INCREASED [None]
  - UNDERDOSE [None]
  - KETOACIDOSIS [None]
  - AMPUTATION [None]
